FAERS Safety Report 13307042 (Version 2)
Quarter: 2020Q2

REPORT INFORMATION
  Report Type: Spontaneous
  Country: FR (occurrence: FR)
  Receive Date: 20170308
  Receipt Date: 20200519
  Transmission Date: 20200713
  Serious: Yes (Hospitalization, Other)
  Sender: FDA-Public Use
  Company Number: FR-SA-2017SA037673

PATIENT
  Age: 74 Year
  Sex: Female

DRUGS (33)
  1. OXALIPLATIN. [Suspect]
     Active Substance: OXALIPLATIN
     Indication: COLORECTAL CANCER
     Dosage: UNK UNK,QCY
     Route: 042
     Dates: start: 201504, end: 201504
  2. CALCIUM FOLINATE [Suspect]
     Active Substance: LEUCOVORIN CALCIUM
     Dosage: UNK UNK,QCY
     Route: 042
     Dates: start: 201602, end: 201602
  3. SIMVASTATIN. [Suspect]
     Active Substance: SIMVASTATIN
     Indication: COLORECTAL CANCER
     Dosage: UNK
     Route: 042
     Dates: start: 201509, end: 201602
  4. FLUOROURACIL. [Suspect]
     Active Substance: FLUOROURACIL
     Indication: COLORECTAL CANCER
     Dosage: UNK UNK,QCY
     Route: 042
     Dates: start: 201504, end: 201504
  5. FLUOROURACIL. [Suspect]
     Active Substance: FLUOROURACIL
     Dosage: UNK UNK,QCY
     Route: 042
     Dates: start: 201611, end: 201611
  6. BEVACIZUMAB. [Suspect]
     Active Substance: BEVACIZUMAB
     Dosage: UNK UNK, QCY
     Route: 042
     Dates: start: 201602, end: 201602
  7. OXALIPLATIN. [Suspect]
     Active Substance: OXALIPLATIN
     Dosage: UNK UNK,QCY
     Route: 042
     Dates: start: 201509, end: 201509
  8. IRINOTECAN [Suspect]
     Active Substance: IRINOTECAN
     Indication: COLORECTAL CANCER
     Dosage: UNK UNK,QCY
     Route: 042
     Dates: start: 201609, end: 201609
  9. IRINOTECAN [Suspect]
     Active Substance: IRINOTECAN
     Dosage: UNK UNK,QCY
     Route: 042
     Dates: start: 20170201, end: 20170201
  10. BEVACIZUMAB. [Suspect]
     Active Substance: BEVACIZUMAB
     Indication: COLORECTAL CANCER
     Dosage: UNK UNK, QCY
     Route: 042
     Dates: start: 201509, end: 201509
  11. FLUOROURACIL. [Suspect]
     Active Substance: FLUOROURACIL
     Dosage: UNK UNK,QCY
     Route: 042
     Dates: start: 201509, end: 201509
  12. FLUOROURACIL. [Suspect]
     Active Substance: FLUOROURACIL
     Dosage: UNK UNK,QCY
     Route: 042
     Dates: start: 201701, end: 201701
  13. BEVACIZUMAB. [Suspect]
     Active Substance: BEVACIZUMAB
     Dosage: UNK UNK, QCY
     Route: 042
     Dates: start: 201609, end: 201609
  14. OXALIPLATIN. [Suspect]
     Active Substance: OXALIPLATIN
     Dosage: UNK UNK,QCY
     Route: 042
     Dates: start: 201611, end: 201611
  15. OXALIPLATIN. [Suspect]
     Active Substance: OXALIPLATIN
     Dosage: UNK UNK,QCY
     Route: 042
     Dates: start: 201701, end: 201701
  16. CALCIUM FOLINATE [Suspect]
     Active Substance: LEUCOVORIN CALCIUM
     Indication: COLORECTAL CANCER
     Dosage: UNK UNK,QCY
     Route: 042
     Dates: start: 201504, end: 201504
  17. CALCIUM FOLINATE [Suspect]
     Active Substance: LEUCOVORIN CALCIUM
     Dosage: UNK UNK,QCY
     Route: 042
     Dates: start: 201509, end: 201509
  18. FLUOROURACIL. [Suspect]
     Active Substance: FLUOROURACIL
     Dosage: UNK UNK,QCY
     Route: 042
     Dates: start: 20170201, end: 20170201
  19. BEVACIZUMAB. [Suspect]
     Active Substance: BEVACIZUMAB
     Dosage: UNK UNK, QCY
     Route: 042
     Dates: start: 201701, end: 201701
  20. OXALIPLATIN. [Suspect]
     Active Substance: OXALIPLATIN
     Dosage: UNK UNK,QCY
     Route: 042
     Dates: start: 201602, end: 201602
  21. CALCIUM FOLINATE [Suspect]
     Active Substance: LEUCOVORIN CALCIUM
     Dosage: UNK UNK,QCY
     Route: 042
     Dates: start: 201701, end: 201701
  22. SIMVASTATIN. [Suspect]
     Active Substance: SIMVASTATIN
     Dosage: UNK
     Route: 042
     Dates: start: 201602, end: 201609
  23. ZALTRAP [Suspect]
     Active Substance: ZIV-AFLIBERCEPT
     Indication: COLORECTAL CANCER
     Dosage: UNK UNK,QCY
     Route: 042
     Dates: start: 201702, end: 201702
  24. SIMVASTATIN. [Suspect]
     Active Substance: SIMVASTATIN
     Dosage: UNK
     Route: 042
     Dates: start: 201609, end: 201611
  25. FLUOROURACIL. [Suspect]
     Active Substance: FLUOROURACIL
     Dosage: UNK UNK,QCY
     Route: 042
     Dates: start: 201602, end: 201602
  26. ZALTRAP [Suspect]
     Active Substance: ZIV-AFLIBERCEPT
     Dosage: UNK UNK,QCY
     Route: 042
     Dates: start: 20170201, end: 20170201
  27. IRINOTECAN [Suspect]
     Active Substance: IRINOTECAN
     Dosage: UNK UNK,QCY
     Route: 042
     Dates: start: 201611, end: 201611
  28. CALCIUM FOLINATE [Suspect]
     Active Substance: LEUCOVORIN CALCIUM
     Dosage: UNK UNK,QCY
     Route: 042
     Dates: start: 201609, end: 201609
  29. CALCIUM FOLINATE [Suspect]
     Active Substance: LEUCOVORIN CALCIUM
     Dosage: UNK UNK,QCY
     Route: 042
     Dates: start: 201611, end: 201611
  30. CALCIUM FOLINATE [Suspect]
     Active Substance: LEUCOVORIN CALCIUM
     Dosage: UNK UNK,QCY
     Route: 042
     Dates: start: 20170201
  31. SIMVASTATIN. [Suspect]
     Active Substance: SIMVASTATIN
     Dosage: UNK
     Route: 042
     Dates: start: 201611, end: 201701
  32. FLUOROURACIL. [Suspect]
     Active Substance: FLUOROURACIL
     Dosage: UNK UNK,QCY
     Route: 042
     Dates: start: 201609, end: 201609
  33. BEVACIZUMAB. [Suspect]
     Active Substance: BEVACIZUMAB
     Dosage: UNK UNK, QCY
     Route: 042
     Dates: start: 201611, end: 201611

REACTIONS (1)
  - Atrial fibrillation [Recovering/Resolving]

NARRATIVE: CASE EVENT DATE: 20170220
